FAERS Safety Report 14879571 (Version 1)
Quarter: 2018Q2

REPORT INFORMATION
  Report Type: Spontaneous
  Country: NO (occurrence: NO)
  Receive Date: 20180511
  Receipt Date: 20180511
  Transmission Date: 20180711
  Serious: Yes (Life-Threatening, Hospitalization, Disabling, Other)
  Sender: FDA-Public Use
  Company Number: NO-ORION CORPORATION ORION PHARMA-18_00003604

PATIENT
  Age: 55 Year
  Sex: Male

DRUGS (8)
  1. PANTOPRAZOLE [Concomitant]
     Active Substance: PANTOPRAZOLE
     Dosage: EVENING
     Route: 065
  2. RITALIN [Concomitant]
     Active Substance: METHYLPHENIDATE HYDROCHLORIDE
     Indication: ATTENTION DEFICIT/HYPERACTIVITY DISORDER
     Dosage: MORNING
     Route: 048
  3. MAGNESIUM [Concomitant]
     Active Substance: MAGNESIUM
     Route: 065
  4. METHOTREXATE (TRADE NAME UNKNOWN) [Suspect]
     Active Substance: METHOTREXATE
     Indication: PSORIATIC ARTHROPATHY
     Dosage: STARTED TOGETHER WITH CIMZIA IN THE SUMMER OF 2014
     Route: 065
     Dates: start: 2014, end: 2017
  5. ADALAT [Concomitant]
     Active Substance: NIFEDIPINE
     Dosage: MORNING
     Route: 048
  6. CIMZIA [Suspect]
     Active Substance: CERTOLIZUMAB PEGOL
     Indication: PSORIATIC ARTHROPATHY
     Dosage: STARTED IN THE SUMMER OF 2014
     Route: 058
     Dates: start: 2014, end: 2017
  7. SEROQUEL [Concomitant]
     Active Substance: QUETIAPINE FUMARATE
     Indication: DEPRESSION
     Dosage: EVENING
     Route: 048
  8. NYCOPLUS C-VITAMIN [Concomitant]
     Route: 048

REACTIONS (8)
  - Osteomyelitis [Recovering/Resolving]
  - Cellulitis [Recovering/Resolving]
  - Spinal cord abscess [Recovering/Resolving]
  - Infectious pleural effusion [Recovering/Resolving]
  - Acute respiratory failure [Recovered/Resolved]
  - Paresis [Not Recovered/Not Resolved]
  - Staphylococcal sepsis [Recovering/Resolving]
  - Meningitis staphylococcal [Recovering/Resolving]

NARRATIVE: CASE EVENT DATE: 2017
